FAERS Safety Report 16382191 (Version 2)
Quarter: 2019Q2

REPORT INFORMATION
  Report Type: Spontaneous
  Country: GB (occurrence: GB)
  Receive Date: 20190603
  Receipt Date: 20190613
  Transmission Date: 20190711
  Serious: Yes (Life-Threatening, Hospitalization)
  Sender: FDA-Public Use
  Company Number: GB-ACCORD-130132

PATIENT
  Age: 85 Year
  Sex: Female
  Weight: 60 kg

DRUGS (16)
  1. FUROSEMIDE. [Concomitant]
     Active Substance: FUROSEMIDE
     Dosage: MORNING
     Dates: start: 20180926
  2. HYPROMELLOSE/HYPROMELLOSE PHTHALATE [Concomitant]
     Dosage: IN THE AFFECTED EYE(S)
     Route: 047
     Dates: start: 20180719
  3. QUININE [Concomitant]
     Active Substance: QUININE
     Dosage: NIGHT
     Dates: start: 20180719
  4. RAMIPRIL. [Suspect]
     Active Substance: RAMIPRIL
     Indication: PRODUCT USED FOR UNKNOWN INDICATION
     Dates: start: 20180823
  5. COSMOCOL [Concomitant]
     Dosage: 1 ONCE A DAY OR 1 TWICE A DAY IF NEEDED
     Dates: start: 20190228
  6. ASPIRIN. [Concomitant]
     Active Substance: ASPIRIN
     Dates: start: 20180719
  7. SALBUTAMOL [Concomitant]
     Active Substance: ALBUTEROL
     Route: 055
     Dates: start: 20180719
  8. ATORVASTATIN [Concomitant]
     Active Substance: ATORVASTATIN
     Dates: start: 20180719
  9. BISACODYL. [Concomitant]
     Active Substance: BISACODYL
     Dosage: TAKE ONE OR TWO AT NIGHT
     Dates: start: 20180719
  10. AMLODIPINE [Concomitant]
     Active Substance: AMLODIPINE BESYLATE
     Dates: start: 20180727
  11. PROCHLORPERAZINE. [Concomitant]
     Active Substance: PROCHLORPERAZINE
     Dosage: THREE TIMES A DAY
     Dates: start: 20190215, end: 20190222
  12. LANSOPRAZOLE. [Concomitant]
     Active Substance: LANSOPRAZOLE
     Dates: start: 20180719
  13. ALLOPURINOL. [Concomitant]
     Active Substance: ALLOPURINOL
     Dates: start: 20180719
  14. BISOPROLOL [Concomitant]
     Active Substance: BISOPROLOL
     Dates: start: 20180823
  15. CODEINE PHOSPHATE/PARACETAMOL [Concomitant]
     Dosage: TAKE 1 OR 2 4 TIMES/DAY
     Dates: start: 20180719
  16. TRIMBOW [Concomitant]
     Active Substance: BECLOMETHASONE DIPROPIONATE\FORMOTEROL FUMARATE\GLYCOPYRROLATE
     Dosage: PUFFS
     Dates: start: 20180829

REACTIONS (1)
  - Anaphylactic reaction [Recovered/Resolved]
